FAERS Safety Report 24283149 (Version 1)
Quarter: 2024Q3

REPORT INFORMATION
  Report Type: Spontaneous
  Country: US (occurrence: None)
  Receive Date: 20240830
  Receipt Date: 20240830
  Transmission Date: 20241016
  Serious: No
  Sender: Public
  Company Number: None

PATIENT

DRUGS (2)
  1. GLIMEPIRIDE\METFORMIN [Suspect]
     Active Substance: GLIMEPIRIDE\METFORMIN
  2. INSULIN NOS [Suspect]
     Active Substance: INSULIN NOS

REACTIONS (5)
  - Peripheral swelling [None]
  - Joint swelling [None]
  - Dizziness [None]
  - Constipation [None]
  - Underdose [None]
